FAERS Safety Report 6763750-8 (Version None)
Quarter: 2010Q2

REPORT INFORMATION
  Report Type: 
  Country: None (occurrence: None)
  Receive Date: 20100610
  Receipt Date: 20100601
  Transmission Date: 20101027
  Serious: Yes (Hospitalization)
  Sender: FDA-Public Use
  Company Number: JP-ROCHE-701822

PATIENT
  Sex: Male

DRUGS (16)
  1. CLONAZEPAM [Suspect]
     Indication: NEUROPATHY PERIPHERAL
     Route: 048
     Dates: start: 20100215, end: 20100421
  2. BEVACIZUMAB [Suspect]
     Indication: RECTAL CANCER METASTATIC
     Dosage: EIGHT CYCLES
     Route: 041
     Dates: start: 20091221, end: 20091221
  3. BEVACIZUMAB [Suspect]
     Route: 041
     Dates: start: 20100115, end: 20100412
  4. OXALIPLATIN [Suspect]
     Indication: RECTAL CANCER METASTATIC
     Dosage: EIGHT CYCLES
     Route: 041
     Dates: start: 20091221, end: 20091221
  5. OXALIPLATIN [Suspect]
     Route: 041
     Dates: start: 20100115, end: 20100412
  6. FLUOROURACIL [Suspect]
     Indication: RECTAL CANCER METASTATIC
     Dosage: EIGHT CYCLES, INTRAVENOUS BOLUS
     Route: 050
     Dates: start: 20091221, end: 20091221
  7. FLUOROURACIL [Suspect]
     Dosage: STOP DATE: DEC 2009, INTRAVENOUS DRIP, EIGHT CYCLES
     Route: 050
     Dates: start: 20091221
  8. FLUOROURACIL [Suspect]
     Dosage: EIGHT CYCLES, EIGHT CYCLES, INTRAVENOUS BOLUS
     Route: 050
     Dates: start: 20100115, end: 20100412
  9. FLUOROURACIL [Suspect]
     Dosage: EIGHT CYCLES, INTRAVENOUS DRIP
     Route: 050
     Dates: start: 20100115, end: 20100401
  10. ISOVORIN [Suspect]
     Indication: RECTAL CANCER METASTATIC
     Dosage: EIGHT CYCLES
     Route: 041
     Dates: start: 20091221, end: 20091221
  11. ISOVORIN [Suspect]
     Dosage: EIGHT CYCLES
     Route: 041
     Dates: start: 20100115, end: 20100412
  12. AMLODIN [Suspect]
     Indication: HYPERTENSION
     Route: 048
     Dates: start: 20100104, end: 20100421
  13. LOXOPROFEN [Suspect]
     Indication: ABDOMINAL PAIN
     Dosage: TAKEN AS NEEDED
     Route: 048
     Dates: start: 20091119, end: 20100421
  14. BENZETHONIUM CHLORIDE [Suspect]
     Indication: PERIODONTITIS
     Dosage: ROUTE: OROPHARINGEAL , DRUG REPORTED: NEOSTELIN GREEN, DOSE FORM: INCLUDE ASPECT
     Route: 050
     Dates: start: 20100215, end: 20100421
  15. HALCION [Suspect]
     Indication: INSOMNIA
     Route: 048
     Dates: start: 20100315, end: 20100420
  16. GOSHAJINKIGAN [Concomitant]
     Indication: NEUROPATHY PERIPHERAL
     Route: 048
     Dates: start: 20100412, end: 20100421

REACTIONS (1)
  - DUODENAL ULCER PERFORATION [None]
